FAERS Safety Report 16884246 (Version 3)
Quarter: 2020Q1

REPORT INFORMATION
  Report Type: Spontaneous
  Country: JP (occurrence: JP)
  Receive Date: 20191004
  Receipt Date: 20200203
  Transmission Date: 20200409
  Serious: Yes (Hospitalization, Other)
  Sender: FDA-Public Use
  Company Number: JP-ROCHE-2366325

PATIENT
  Age: 65 Year
  Sex: Female
  Weight: 44 kg

DRUGS (18)
  1. TARCEVA [Suspect]
     Active Substance: ERLOTINIB HYDROCHLORIDE
     Dosage: DOSAGE IS UNCERTAIN.
     Route: 041
     Dates: start: 20180619, end: 20180713
  2. CISPLATIN. [Suspect]
     Active Substance: CISPLATIN
     Dosage: DOSE INTERVAL UNCERTAINTY
     Route: 041
     Dates: start: 20180806, end: 20181213
  3. MINOCYCLINE HYDROCHLORIDE. [Concomitant]
     Active Substance: MINOCYCLINE HYDROCHLORIDE
     Dosage: DOSAGE IS UNCERTAIN.
     Route: 065
     Dates: start: 20190308
  4. AVASTIN [Suspect]
     Active Substance: BEVACIZUMAB
     Indication: LUNG ADENOCARCINOMA
     Dosage: DOSE INTERVAL UNCERTAINTY
     Route: 041
     Dates: start: 20180508, end: 20180529
  5. CISPLATIN. [Suspect]
     Active Substance: CISPLATIN
     Dosage: DOSE INTERVAL UNCERTAINTY
     Route: 041
     Dates: start: 20180619, end: 20180713
  6. ALIMTA [Suspect]
     Active Substance: PEMETREXED DISODIUM
     Indication: LUNG ADENOCARCINOMA
     Route: 041
     Dates: start: 20180508, end: 20180529
  7. L-CARBOCYSTEINE [Concomitant]
     Active Substance: CARBOCYSTEINE
     Dosage: DOSAGE IS UNCERTAIN.
     Route: 065
     Dates: start: 20181009, end: 20190815
  8. TARCEVA [Suspect]
     Active Substance: ERLOTINIB HYDROCHLORIDE
     Dosage: DOSE INTERVAL UNCERTAINTY
     Route: 041
     Dates: start: 20180806, end: 20181213
  9. AVASTIN [Suspect]
     Active Substance: BEVACIZUMAB
     Route: 041
     Dates: start: 20180806, end: 20181213
  10. E KEPPRA [Concomitant]
     Active Substance: LEVETIRACETAM
     Dosage: DOSAGE IS UNCERTAIN.
     Route: 065
     Dates: start: 20190228
  11. AVASTIN [Suspect]
     Active Substance: BEVACIZUMAB
     Dosage: DOSE INTERVAL UNCERTAINTY
     Route: 041
     Dates: start: 20180619, end: 20180713
  12. CISPLATIN. [Suspect]
     Active Substance: CISPLATIN
     Indication: LUNG ADENOCARCINOMA
     Dosage: DOSE INTERVAL UNCERTAINTY
     Route: 041
     Dates: start: 20180508, end: 20180529
  13. BILANOA [Concomitant]
     Active Substance: BILASTINE
     Dosage: DOSAGE IS UNCERTAIN.
     Route: 065
     Dates: start: 20190131
  14. AVASTIN [Suspect]
     Active Substance: BEVACIZUMAB
     Route: 041
     Dates: start: 20190311, end: 20190606
  15. TARCEVA [Suspect]
     Active Substance: ERLOTINIB HYDROCHLORIDE
     Indication: LUNG ADENOCARCINOMA
     Dosage: DOSE INTERVAL UNCERTAINTY
     Route: 048
     Dates: start: 20190311, end: 20190607
  16. LAFUTIDINE [Concomitant]
     Active Substance: LAFUTIDINE
     Dosage: DOSAGE IS UNCERTAIN.
     Route: 065
     Dates: start: 20190312, end: 20190713
  17. ALIMTA [Suspect]
     Active Substance: PEMETREXED DISODIUM
     Route: 041
     Dates: start: 20180619, end: 20180713
  18. ALIMTA [Suspect]
     Active Substance: PEMETREXED DISODIUM
     Route: 041
     Dates: start: 20180806, end: 20181213

REACTIONS (3)
  - Malaise [Recovered/Resolved]
  - Skin disorder [Recovered/Resolved]
  - Metastases to meninges [Unknown]

NARRATIVE: CASE EVENT DATE: 20180529
